FAERS Safety Report 10177730 (Version 1)
Quarter: 2014Q2

REPORT INFORMATION
  Report Type: Spontaneous
  Country: US (occurrence: US)
  Receive Date: 20140516
  Receipt Date: 20140516
  Transmission Date: 20141212
  Serious: No
  Sender: FDA-Public Use
  Company Number: US-SANOFI-AVENTIS-2013SA043397

PATIENT
  Age: 82 Year
  Sex: Female

DRUGS (5)
  1. APIDRA SOLOSTAR [Suspect]
  2. SOLOSTAR [Suspect]
  3. LANTUS SOLOSTAR [Suspect]
     Dosage: DOSE:40 UNIT(S)
     Route: 051
  4. SOLOSTAR [Suspect]
  5. NOVOLOG [Suspect]

REACTIONS (2)
  - Feeling abnormal [Recovered/Resolved]
  - Blood glucose increased [Unknown]
